FAERS Safety Report 24646536 (Version 1)
Quarter: 2024Q4

REPORT INFORMATION
  Report Type: Spontaneous
  Country: US (occurrence: US)
  Receive Date: 20241121
  Receipt Date: 20241121
  Transmission Date: 20250114
  Serious: Yes (Life-Threatening, Hospitalization, Other)
  Sender: BRISTOL-MYERS SQUIBB COMPANY
  Company Number: US-BRISTOL-MYERS SQUIBB COMPANY-2024-178479

PATIENT
  Age: 71 Year
  Sex: Female

DRUGS (1)
  1. CAMZYOS [Suspect]
     Active Substance: MAVACAMTEN
     Indication: Hypertrophic cardiomyopathy
     Dosage: 1 CAPSULE BY MOUTH ONCE DAILY 28 DAY CYCLE
     Route: 048
     Dates: start: 202304

REACTIONS (1)
  - Pulseless electrical activity [Recovering/Resolving]

NARRATIVE: CASE EVENT DATE: 20241029
